FAERS Safety Report 4374202-7 (Version None)
Quarter: 2004Q2

REPORT INFORMATION
  Report Type: 
  Country: None (occurrence: None)
  Receive Date: 20040604
  Receipt Date: 20040528
  Transmission Date: 20050107
  Serious: Yes (Death)
  Sender: FDA-Public Use
  Company Number: US-JNJFOC-20040600456

PATIENT
  Sex: Male

DRUGS (1)
  1. REMINYL [Suspect]

REACTIONS (1)
  - DEATH [None]
